FAERS Safety Report 8760046 (Version 1)
Quarter: 2012Q4

REPORT INFORMATION
  Report Type: Spontaneous
  Country: US (occurrence: None)
  Receive Date: 20120829
  Receipt Date: 20120829
  Transmission Date: 20130627
  Serious: No
  Sender: FDA-Public Use
  Company Number: None

PATIENT
  Age: 74 Year
  Sex: Male
  Weight: 93.2 kg

DRUGS (3)
  1. CIALIS [Suspect]
     Indication: BPH
     Route: 048
     Dates: start: 20120814, end: 20120819
  2. CIALIS [Suspect]
     Indication: BPH
  3. CIALIS [Suspect]
     Dates: start: 20120822, end: 20120824

REACTIONS (5)
  - Dyspepsia [None]
  - Pain in extremity [None]
  - Fatigue [None]
  - Nasal congestion [None]
  - Myalgia [None]
